FAERS Safety Report 7783136-7 (Version None)
Quarter: 2011Q3

REPORT INFORMATION
  Report Type: 
  Country: None (occurrence: None)
  Receive Date: 20110928
  Receipt Date: 20110922
  Transmission Date: 20111222
  Serious: Yes (Death)
  Sender: FDA-Public Use
  Company Number: GB-TEVA-302031ISR

PATIENT
  Age: 27 Year
  Sex: Female

DRUGS (5)
  1. DICLOFENAC [Suspect]
     Indication: PRODUCT USED FOR UNKNOWN INDICATION
  2. FERROUS SULFATE TAB [Suspect]
     Indication: PRODUCT USED FOR UNKNOWN INDICATION
  3. CO-DYDRAMOL [Suspect]
     Indication: PRODUCT USED FOR UNKNOWN INDICATION
  4. CO-DYDRAMOL [Suspect]
  5. IBUPROFEN [Suspect]
     Indication: PRODUCT USED FOR UNKNOWN INDICATION

REACTIONS (4)
  - HEPATOTOXICITY [None]
  - ACUTE HEPATIC FAILURE [None]
  - MULTIPLE DRUG OVERDOSE [None]
  - COAGULOPATHY [None]
